FAERS Safety Report 7320050-5 (Version None)
Quarter: 2011Q1

REPORT INFORMATION
  Report Type: 
  Country: None (occurrence: None)
  Receive Date: 20110228
  Receipt Date: 20110221
  Transmission Date: 20110831
  Serious: Yes (Other)
  Sender: FDA-Public Use
  Company Number: CA-PFIZER INC-2011037590

PATIENT
  Age: 71 Year
  Sex: Male

DRUGS (2)
  1. TAMSULOSIN HYDROCHLORIDE [Suspect]
     Dosage: UNK
     Dates: start: 20101101
  2. DILANTIN [Suspect]
     Dosage: 200 MG, 2X/DAY

REACTIONS (1)
  - DRUG LEVEL INCREASED [None]
